FAERS Safety Report 12265814 (Version 2)
Quarter: 2016Q2

REPORT INFORMATION
  Report Type: Spontaneous
  Country: AU (occurrence: AU)
  Receive Date: 20160413
  Receipt Date: 20160510
  Transmission Date: 20160815
  Serious: Yes (Other)
  Sender: FDA-Public Use
  Company Number: AU-SEATTLE GENETICS-2016SGN00530

PATIENT

DRUGS (1)
  1. ADCETRIS [Suspect]
     Active Substance: BRENTUXIMAB VEDOTIN
     Indication: HODGKIN^S DISEASE
     Dosage: 1.2 MG/KG, UNK
     Route: 065

REACTIONS (4)
  - Blood bilirubin increased [Unknown]
  - Hepatic failure [Unknown]
  - Renal impairment [Unknown]
  - Off label use [Unknown]
